FAERS Safety Report 10395216 (Version 1)
Quarter: 2014Q3

REPORT INFORMATION
  Report Type: Spontaneous
  Country: US (occurrence: None)
  Receive Date: 20140819
  Receipt Date: 20140819
  Transmission Date: 20150326
  Serious: Yes (Death, Life-Threatening, Hospitalization)
  Sender: FDA-Public Use
  Company Number: None

PATIENT
  Age: 93 Year
  Sex: Female
  Weight: 61.24 kg

DRUGS (2)
  1. CEFDINIR. [Suspect]
     Active Substance: CEFDINIR
     Indication: SINUSITIS
     Dosage: 1 ONCE DAILY TAKEN BY MOUTH
     Route: 048
     Dates: start: 20140608, end: 20140612
  2. CEFDINIR. [Suspect]
     Active Substance: CEFDINIR
     Indication: COUGH
     Dosage: 1 ONCE DAILY TAKEN BY MOUTH
     Route: 048
     Dates: start: 20140608, end: 20140612

REACTIONS (3)
  - Diarrhoea [None]
  - Clostridium difficile infection [None]
  - Fall [None]

NARRATIVE: CASE EVENT DATE: 20140607
